FAERS Safety Report 6260709-4 (Version None)
Quarter: 2009Q3

REPORT INFORMATION
  Report Type: 
  Country: None (occurrence: None)
  Receive Date: 20090706
  Receipt Date: 20090619
  Transmission Date: 20100115
  Serious: Yes (Hospitalization)
  Sender: FDA-Public Use
  Company Number: 2008AL008127

PATIENT
  Age: 75 Year
  Sex: Female

DRUGS (12)
  1. DIGOXIN [Suspect]
     Dosage: 0.125MG, DAILY, PO
     Route: 048
     Dates: start: 20070724, end: 20080501
  2. TRIAMTERENE [Concomitant]
  3. LIPITOR [Concomitant]
  4. VALIUM [Concomitant]
  5. HYDROCODONE [Concomitant]
  6. LISINOPRIL [Concomitant]
  7. PRILOSEC [Concomitant]
  8. AMIODARONE HCL [Concomitant]
  9. COUMADIN [Concomitant]
  10. BACTRIM [Concomitant]
  11. PREMARIN [Concomitant]
  12. TRICOR [Concomitant]

REACTIONS (13)
  - ANXIETY [None]
  - ASTHENIA [None]
  - ATRIAL FIBRILLATION [None]
  - BRADYCARDIA [None]
  - CHEST PAIN [None]
  - COUGH [None]
  - DEPRESSION [None]
  - DIZZINESS [None]
  - FATIGUE [None]
  - HYPOTENSION [None]
  - INJURY [None]
  - RENAL FAILURE [None]
  - THERAPEUTIC AGENT TOXICITY [None]
